FAERS Safety Report 9512021 (Version 2)
Quarter: 2013Q3

REPORT INFORMATION
  Report Type: Spontaneous
  Country: DK (occurrence: DK)
  Receive Date: 20130910
  Receipt Date: 20130926
  Transmission Date: 20140515
  Serious: Yes (Death)
  Sender: FDA-Public Use
  Company Number: DK-NOVOPROD-386863

PATIENT
  Age: 79 Year
  Sex: Female

DRUGS (12)
  1. VICTOZA [Suspect]
     Indication: TYPE 2 DIABETES MELLITUS
     Dosage: 0.6 MG, QD
     Route: 065
     Dates: start: 20101111
  2. VICTOZA [Suspect]
     Indication: BLOOD GLUCOSE FLUCTUATION
  3. VICTOZA [Suspect]
     Indication: HYPOGLYCAEMIA
  4. LEVEMIR [Suspect]
     Indication: TYPE 2 DIABETES MELLITUS
     Dosage: 22-24 IE IN THE EVENING
     Route: 065
     Dates: start: 20100526
  5. LEVEMIR [Suspect]
     Indication: BLOOD GLUCOSE FLUCTUATION
     Dosage: LAST COUPLE OF YEARS (INCREASING AND BOTH MOR AND EVE)
     Route: 065
  6. LEVEMIR [Suspect]
     Indication: HYPOGLYCAEMIA
     Dosage: 24 IU MORNING AND 48 IU EVENING
     Route: 065
     Dates: start: 201303
  7. LANSO [Concomitant]
     Dosage: LAST COUPLE OF MONTHS
  8. DIOVAN [Concomitant]
  9. DIOVAN COMP [Concomitant]
  10. NORVASC [Concomitant]
  11. CENTYL K [Concomitant]
  12. ASA [Concomitant]

REACTIONS (1)
  - Pancreatic carcinoma metastatic [Fatal]
